FAERS Safety Report 8781761 (Version 1)
Quarter: 2012Q4

REPORT INFORMATION
  Report Type: 
  Country: US (occurrence: US)
  Receive Date: 20120913
  Receipt Date: 20120913
  Transmission Date: 20130627
  Serious: Yes (Other)
  Sender: FDA-Public Use
  Company Number: US-PFIZER INC-2012225941

PATIENT
  Age: 61 Year
  Sex: Female
  Weight: 66.21 kg

DRUGS (5)
  1. PRISTIQ [Suspect]
     Indication: ANXIETY
     Dosage: 50 mg, daily
     Route: 048
     Dates: start: 201111, end: 20120501
  2. PRISTIQ [Suspect]
     Indication: DEPRESSION
     Dosage: 100 mg, daily
     Route: 048
     Dates: start: 20120502
  3. CLONAZEPAM [Concomitant]
     Indication: NEUROPATHY PERIPHERAL
     Dosage: 1 mg, as needed
  4. CLONAZEPAM [Concomitant]
     Indication: PANIC ATTACK
  5. CLONAZEPAM [Concomitant]
     Indication: ANXIETY

REACTIONS (5)
  - Depression [Unknown]
  - Anxiety [Unknown]
  - Drug ineffective [Unknown]
  - Headache [Unknown]
  - Medication residue [Unknown]
